FAERS Safety Report 16744251 (Version 2)
Quarter: 2019Q4

REPORT INFORMATION
  Report Type: Report from Study
  Country: None (occurrence: NL)
  Receive Date: 20190827
  Receipt Date: 20191224
  Transmission Date: 20200122
  Serious: Yes (Other)
  Sender: FDA-Public Use
  Company Number: NL-ABBVIE-19S-114-2787067-00

PATIENT
  Sex: Female
  Weight: 63 kg

DRUGS (2)
  1. DUODOPA [Suspect]
     Active Substance: CARBIDOPA\LEVODOPA
     Route: 050
     Dates: start: 20180703
  2. DUODOPA [Suspect]
     Active Substance: CARBIDOPA\LEVODOPA
     Indication: PARKINSON^S DISEASE
     Route: 050
     Dates: start: 20180703

REACTIONS (4)
  - Bradykinesia [Not Recovered/Not Resolved]
  - Therapeutic product effect variable [Unknown]
  - Feeling abnormal [Unknown]
  - Spinal stenosis [Recovered/Resolved]
